FAERS Safety Report 9166398 (Version 7)
Quarter: 2014Q1

REPORT INFORMATION
  Report Type: Report from Study
  Country: TW (occurrence: TW)
  Receive Date: 20130315
  Receipt Date: 20140228
  Transmission Date: 20141002
  Serious: Yes (Other)
  Sender: FDA-Public Use
  Company Number: PHHY2013TW025467

PATIENT
  Age: 84 Year
  Sex: Male

DRUGS (7)
  1. TASIGNA [Suspect]
     Indication: CHRONIC MYELOID LEUKAEMIA
     Dosage: 600 MG, DAILY
     Route: 048
     Dates: start: 20110818
  2. TASIGNA [Suspect]
     Dosage: 2 DF, QD
     Route: 048
     Dates: start: 20111110
  3. TASIGNA [Suspect]
     Dosage: 1.5 DF, BID
     Route: 048
     Dates: start: 20111229
  4. TASIGNA [Suspect]
     Dosage: 2 DF, BID
     Dates: start: 20120412
  5. TASIGNA [Suspect]
     Dosage: 3 DF, BID
     Dates: start: 20120426
  6. TASIGNA [Suspect]
     Dosage: 600 MG, DAILY
     Route: 048
     Dates: end: 201303
  7. TASIGNA [Suspect]
     Dosage: 800 MG/DAY
     Route: 048
     Dates: start: 20130718

REACTIONS (6)
  - Anaemia [Not Recovered/Not Resolved]
  - Platelet count decreased [Not Recovered/Not Resolved]
  - Nausea [Recovering/Resolving]
  - Rash pruritic [Not Recovered/Not Resolved]
  - Cough [Not Recovered/Not Resolved]
  - Hypophagia [Recovering/Resolving]
